FAERS Safety Report 8058051-4 (Version None)
Quarter: 2012Q1

REPORT INFORMATION
  Report Type: 
  Country: None (occurrence: None)
  Receive Date: 20120113
  Receipt Date: 20120105
  Transmission Date: 20120608
  Serious: Yes (Hospitalization)
  Sender: FDA-Public Use
  Company Number: 2011S1001628

PATIENT
  Age: 57 Year
  Sex: Female
  Weight: 62 kg

DRUGS (2)
  1. LIVALO [Suspect]
     Indication: DYSLIPIDAEMIA
     Dosage: 1 MG;1X;PO
     Route: 048
     Dates: start: 20100531, end: 20111028
  2. INFREE [Concomitant]

REACTIONS (1)
  - RHABDOMYOLYSIS [None]
